FAERS Safety Report 21950201 (Version 1)
Quarter: 2023Q1

REPORT INFORMATION
  Report Type: Spontaneous
  Country: US (occurrence: US)
  Receive Date: 20230203
  Receipt Date: 20230203
  Transmission Date: 20230417
  Serious: No
  Sender: FDA-Public Use
  Company Number: US-ORPHANEU-2018008281

PATIENT

DRUGS (1)
  1. CYSTADANE [Suspect]
     Active Substance: BETAINE
     Indication: Homocystinuria
     Dosage: 1.5 G, BID
     Route: 048
     Dates: start: 20180928

REACTIONS (5)
  - Gastroenteritis [Unknown]
  - Pyrexia [Unknown]
  - Vomiting [Unknown]
  - Diarrhoea [Unknown]
  - Product dose omission issue [Recovered/Resolved]

NARRATIVE: CASE EVENT DATE: 20181012
